FAERS Safety Report 16849260 (Version 1)
Quarter: 2019Q4

REPORT INFORMATION
  Report Type: Spontaneous
  Country: US (occurrence: US)
  Receive Date: 20190924
  Receipt Date: 20190924
  Transmission Date: 20200122
  Serious: Yes (Other)
  Sender: FDA-Public Use
  Company Number: None

PATIENT
  Age: 48 Year
  Sex: Female
  Weight: 66.6 kg

DRUGS (10)
  1. RELPAX [Concomitant]
     Active Substance: ELETRIPTAN HYDROBROMIDE
  2. COQ10 [Concomitant]
     Active Substance: UBIDECARENONE
  3. LISINOPRIL. [Concomitant]
     Active Substance: LISINOPRIL
  4. AZOTHIAPRINE [Concomitant]
  5. AIMOVIG [Suspect]
     Active Substance: ERENUMAB-AOOE
     Dosage: ?          OTHER FREQUENCY:ONCE A MONTH;?
     Route: 058
     Dates: start: 20190715, end: 20190915
  6. FISH OIL [Concomitant]
     Active Substance: FISH OIL
  7. NORTRYPTYLINE [Concomitant]
  8. PROMETHAZINE [Concomitant]
     Active Substance: PROMETHAZINE HYDROCHLORIDE
  9. FIORICET WITH CODEINE [Concomitant]
     Active Substance: ACETAMINOPHEN\BUTALBITAL\CAFFEINE\CODEINE PHOSPHATE
  10. VITAMIN B COMPLEX [Concomitant]
     Active Substance: CYANOCOBALAMIN\DEXPANTHENOL\NIACINAMIDE\PYRIDOXINE HYDROCHLORIDE\RIBOFLAVIN 5^-PHOSPHATE SODIUM\THIAMINE HYDROCHLORIDE\VITAMIN B COMPLEX

REACTIONS (8)
  - Crystal urine present [None]
  - Abdominal pain [None]
  - Arthralgia [None]
  - Urinary tract infection [None]
  - Fatigue [None]
  - Dyspepsia [None]
  - Glomerular filtration rate decreased [None]
  - Hyperparathyroidism [None]

NARRATIVE: CASE EVENT DATE: 20190824
